FAERS Safety Report 12187537 (Version 1)
Quarter: 2016Q1

REPORT INFORMATION
  Report Type: Spontaneous
  Country: DE (occurrence: DE)
  Receive Date: 20160317
  Receipt Date: 20160317
  Transmission Date: 20160526
  Serious: Yes (Other)
  Sender: FDA-Public Use
  Company Number: DE-PFIZER INC-2016157223

PATIENT
  Age: 30 Year
  Sex: Female

DRUGS (2)
  1. ZIPRASIDONE HCL [Suspect]
     Active Substance: ZIPRASIDONE HYDROCHLORIDE
     Indication: PSYCHOTIC DISORDER
     Dosage: BETWEEN 160 MG PER DAY AND 120 MG PER DAY
     Route: 048
     Dates: start: 20150103, end: 20151008
  2. HALOPERIDOL. [Suspect]
     Active Substance: HALOPERIDOL
     Indication: PSYCHOTIC DISORDER
     Dosage: BETWEEN 2 MG PER DAY AND 1 MG PER DAY
     Route: 048
     Dates: start: 20150103, end: 20151008

REACTIONS (2)
  - Psychotic disorder [Unknown]
  - Bronchitis [Unknown]

NARRATIVE: CASE EVENT DATE: 2015
